FAERS Safety Report 9292635 (Version 4)
Quarter: 2013Q3

REPORT INFORMATION
  Report Type: Report from Study
  Country: BR (occurrence: BR)
  Receive Date: 20130516
  Receipt Date: 20130722
  Transmission Date: 20140515
  Serious: Yes (Other)
  Sender: FDA-Public Use
  Company Number: PHHY2012BR029830

PATIENT
  Sex: Female

DRUGS (7)
  1. DIOVAN [Suspect]
     Indication: BLOOD PRESSURE ABNORMAL
     Dosage: 80 MG, DAILY
     Route: 048
  2. DIOVAN [Suspect]
     Dosage: 160 MG, DAILY
     Route: 048
  3. DIOVAN [Suspect]
     Dosage: 320 MG, DAILY
     Route: 048
  4. HYDROCHLOROTHIAZIDE [Suspect]
     Dosage: 0.5 DF
  5. SAFFLOWER OIL [Concomitant]
     Dosage: 4 DF, DAILY
     Route: 048
  6. FORASEQ [Concomitant]
     Indication: ASTHMA
     Dosage: 1 DF (400 MG) , QOD
  7. MANIVASC [Concomitant]

REACTIONS (10)
  - Diabetes mellitus [Not Recovered/Not Resolved]
  - Gastritis [Not Recovered/Not Resolved]
  - Labyrinthitis [Not Recovered/Not Resolved]
  - Dizziness [Not Recovered/Not Resolved]
  - Blood pressure increased [Not Recovered/Not Resolved]
  - Nervousness [Not Recovered/Not Resolved]
  - Boredom [Not Recovered/Not Resolved]
  - Stress [Not Recovered/Not Resolved]
  - Blood cholesterol increased [Not Recovered/Not Resolved]
  - Drug ineffective [Not Recovered/Not Resolved]
